FAERS Safety Report 9213896 (Version 3)
Quarter: 2016Q2

REPORT INFORMATION
  Report Type: Spontaneous
  Country: US (occurrence: US)
  Receive Date: 20130405
  Receipt Date: 20160408
  Transmission Date: 20160815
  Serious: Yes (Other)
  Sender: FDA-Public Use
  Company Number: US-009507513-1304USA001015

PATIENT
  Sex: Male

DRUGS (1)
  1. PROPECIA [Suspect]
     Active Substance: FINASTERIDE
     Indication: ANDROGENETIC ALOPECIA
     Dosage: 1 MG, UNK
     Route: 048
     Dates: start: 200108, end: 20070107

REACTIONS (15)
  - Genital disorder male [Unknown]
  - Anxiety [Not Recovered/Not Resolved]
  - Fatigue [Unknown]
  - Libido decreased [Unknown]
  - Knee operation [Unknown]
  - Semen volume decreased [Unknown]
  - Hypersensitivity [Unknown]
  - Panic attack [Not Recovered/Not Resolved]
  - Erectile dysfunction [Unknown]
  - Depression [Not Recovered/Not Resolved]
  - Cognitive disorder [Unknown]
  - Sexual dysfunction [Unknown]
  - Orgasm abnormal [Unknown]
  - Ejaculation disorder [Unknown]
  - Headache [Unknown]

NARRATIVE: CASE EVENT DATE: 200410
